FAERS Safety Report 8785305 (Version 1)
Quarter: 2012Q4

REPORT INFORMATION
  Report Type: Spontaneous
  Country: GB (occurrence: None)
  Receive Date: 20120905
  Receipt Date: 20120905
  Transmission Date: 20130627
  Serious: Yes (Other)
  Sender: FDA-Public Use
  Company Number: TPA2012A05911

PATIENT
  Age: 44 Year
  Sex: Male

DRUGS (3)
  1. ADENURIC [Suspect]
     Indication: GOUT
     Route: 048
     Dates: start: 20120220, end: 20120601
  2. CO-CODAMOL (CODEINE PHOSPHATE, PARACETAMOL) [Concomitant]
  3. NAPROXEN (NAPROXEN) [Concomitant]

REACTIONS (3)
  - Visual impairment [None]
  - Headache [None]
  - Rash [None]
